FAERS Safety Report 7764410-7 (Version None)
Quarter: 2011Q3

REPORT INFORMATION
  Report Type: 
  Country: None (occurrence: None)
  Receive Date: 20110921
  Receipt Date: 20110912
  Transmission Date: 20111222
  Serious: Yes (Other)
  Sender: FDA-Public Use
  Company Number: GB-B.I. PHARMACEUTICALS,INC./RIDGEFIELD-2011-UK-00969UK

PATIENT
  Age: 68 Year
  Sex: Female
  Weight: 83 kg

DRUGS (3)
  1. HYDROCORTISONE [Concomitant]
     Indication: VAGINAL INFECTION
     Route: 061
     Dates: start: 20110218
  2. SPIRIVA [Suspect]
     Indication: CHRONIC OBSTRUCTIVE PULMONARY DISEASE
     Dosage: 2 DF
     Route: 055
     Dates: start: 20110704, end: 20110711
  3. MICONAZOLE [Concomitant]
     Indication: VAGINAL INFECTION
     Route: 061
     Dates: start: 20110218

REACTIONS (2)
  - PRURITUS GENERALISED [None]
  - SKIN EXFOLIATION [None]
